FAERS Safety Report 7954506-9 (Version None)
Quarter: 2011Q4

REPORT INFORMATION
  Report Type: 
  Country: None (occurrence: None)
  Receive Date: 20111202
  Receipt Date: 20111128
  Transmission Date: 20120403
  Serious: Yes (Hospitalization)
  Sender: FDA-Public Use
  Company Number: US-AMGEN-QUU399959

PATIENT
  Age: 21 Year
  Sex: Female

DRUGS (1)
  1. ENBREL [Suspect]
     Indication: ANKYLOSING SPONDYLITIS
     Dosage: 50 MG, QWK
     Route: 058
     Dates: start: 20090524, end: 20100101

REACTIONS (7)
  - HALLUCINATION [None]
  - DIARRHOEA [None]
  - CROHN'S DISEASE [None]
  - FATIGUE [None]
  - DEHYDRATION [None]
  - MUSCLE SPASMS [None]
  - INJECTION SITE INDURATION [None]
